FAERS Safety Report 9292336 (Version 2)
Quarter: 2013Q2

REPORT INFORMATION
  Report Type: Spontaneous
  Country: NL (occurrence: None)
  Receive Date: 20130513
  Receipt Date: 20130516
  Transmission Date: 20140414
  Serious: Yes (Hospitalization)
  Sender: FDA-Public Use
  Company Number: FK201301533

PATIENT
  Age: 51 Year
  Sex: Female

DRUGS (1)
  1. CISPLATIN [Suspect]

REACTIONS (5)
  - Posterior reversible encephalopathy syndrome [None]
  - Deafness unilateral [None]
  - Procedural nausea [None]
  - Blood creatinine increased [None]
  - Generalised oedema [None]
